FAERS Safety Report 10290951 (Version 6)
Quarter: 2015Q1

REPORT INFORMATION
  Report Type: Report from Study
  Country: US (occurrence: US)
  Receive Date: 20140710
  Receipt Date: 20150210
  Transmission Date: 20150720
  Serious: Yes (Hospitalization, Other)
  Sender: FDA-Public Use
  Company Number: US-ACTELION-A-US2014-96900

PATIENT
  Age: 84 Year
  Sex: Female

DRUGS (3)
  1. SPIRIVA [Concomitant]
     Active Substance: TIOTROPIUM BROMIDE MONOHYDRATE
     Dosage: 18 MCG, QD
  2. MACITENTAN [Suspect]
     Active Substance: MACITENTAN
     Indication: PULMONARY ARTERIAL HYPERTENSION
     Dosage: 10 MG, QD
     Route: 048
     Dates: start: 20140220
  3. MACITENTAN [Suspect]
     Active Substance: MACITENTAN
     Dosage: 10 MG, QD
     Route: 048

REACTIONS (9)
  - Hypotension [Unknown]
  - Chest discomfort [Unknown]
  - Malaise [Unknown]
  - Dizziness [Unknown]
  - Dyspnoea [Unknown]
  - Cough [Unknown]
  - Dyspnoea exertional [Unknown]
  - Gastrointestinal haemorrhage [Unknown]
  - Constipation [Unknown]

NARRATIVE: CASE EVENT DATE: 20140618
